FAERS Safety Report 4737683-2 (Version None)
Quarter: 2005Q3

REPORT INFORMATION
  Report Type: 
  Country: None (occurrence: None)
  Receive Date: 20050809
  Receipt Date: 20050614
  Transmission Date: 20060218
  Serious: No
  Sender: FDA-Public Use
  Company Number: US-GLAXOSMITHKLINE-A0562540A

PATIENT
  Age: 55 Year
  Sex: Male

DRUGS (1)
  1. COMMIT [Suspect]
     Dates: start: 20050614, end: 20050614

REACTIONS (2)
  - DYSPEPSIA [None]
  - THROAT IRRITATION [None]
